FAERS Safety Report 7730385-X (Version None)
Quarter: 2011Q3

REPORT INFORMATION
  Report Type: 
  Country: None (occurrence: None)
  Receive Date: 20110906
  Receipt Date: 20110822
  Transmission Date: 20111222
  Serious: Yes (Other)
  Sender: FDA-Public Use
  Company Number: CA-PFIZER INC-2011200736

PATIENT
  Age: 66 Year
  Sex: Female

DRUGS (14)
  1. AMLODIPINE [Concomitant]
     Dosage: 10 MG, 1X/DAY
     Route: 065
  2. ATORVASTATIN [Concomitant]
     Dosage: 20 MG, 1X/DAY
     Route: 065
  3. MIRTAZAPINE [Suspect]
     Indication: PARANOIA
     Dosage: 15 MG, 1X/DAY
  4. MELOXICAM [Concomitant]
     Dosage: 15 MG, 1X/DAY
     Route: 065
  5. TRAMADOL HCL [Suspect]
     Dosage: 37.5 MG, 3X/DAY
  6. HALOPERIDOL [Suspect]
     Indication: PARANOIA
     Dosage: 2 MG, 2X/DAY
  7. WARFARIN [Concomitant]
     Dosage: 2 MG, UNK
     Route: 065
  8. PAROXETINE HCL [Suspect]
     Dosage: 20 MG, 1X/DAY
  9. IMIPRAMINE [Suspect]
     Dosage: 25 MG, 1X/DAY
  10. MOXIFLOXACIN [Concomitant]
     Indication: PNEUMONIA
     Dosage: 400 MG, 1X/DAY
     Route: 065
  11. FUROSEMIDE [Concomitant]
     Dosage: 40 MG, 2X/DAY
     Route: 065
  12. TRAZODONE [Concomitant]
     Dosage: 50 MG, 1X/DAY
     Route: 065
  13. OXYCODONE [Concomitant]
     Dosage: 5 MG, 2X/DAY
     Route: 065
  14. DOMPERIDONE [Concomitant]
     Dosage: 10 MG, 4X/DAY
     Route: 065

REACTIONS (3)
  - SEROTONIN SYNDROME [None]
  - MOBILITY DECREASED [None]
  - SLEEP DISORDER [None]
